FAERS Safety Report 23680678 (Version 1)
Quarter: 2024Q1

REPORT INFORMATION
  Report Type: Report from Study
  Country: CN (occurrence: CN)
  Receive Date: 20240328
  Receipt Date: 20240328
  Transmission Date: 20240410
  Serious: Yes (Congenital Anomaly, Other)
  Sender: FDA-Public Use
  Company Number: CN-UCBSA-2024012764

PATIENT

DRUGS (1)
  1. CERTOLIZUMAB PEGOL [Suspect]
     Active Substance: CERTOLIZUMAB PEGOL
     Indication: Prophylaxis of abortion
     Dosage: 200 MILLIGRAM, EV 2 WEEKS(QOW) INJECTION
     Route: 064

REACTIONS (4)
  - Cleft lip [Unknown]
  - Persistent left superior vena cava [Unknown]
  - Maternal exposure during pregnancy [Unknown]
  - Maternal exposure before pregnancy [Unknown]
